FAERS Safety Report 5031968-0 (Version None)
Quarter: 2006Q2

REPORT INFORMATION
  Report Type: 
  Country: None (occurrence: None)
  Receive Date: 20060607
  Receipt Date: 20060524
  Transmission Date: 20061013
  Serious: Yes (Hospitalization, Disabling, Other)
  Sender: FDA-Public Use
  Company Number: 200410546BBE

PATIENT
  Age: 21 Month
  Sex: Male

DRUGS (41)
  1. HYPRHO-D [Suspect]
     Indication: RHESUS INCOMPATIBILITY
     Dosage: SEE IMAGE
     Dates: start: 19941216
  2. HYPRHO-D [Suspect]
     Indication: RHESUS INCOMPATIBILITY
     Dosage: SEE IMAGE
     Dates: start: 19950303
  3. HYPRHO-D [Suspect]
  4. PRELONE [Concomitant]
  5. HEPATITIS B VACCINE [Concomitant]
  6. RACEMIC EPINEPHRINE [Concomitant]
  7. ROCEPHIN [Concomitant]
  8. ZITHROMAX [Concomitant]
  9. AMPICILLIN [Concomitant]
  10. DECADRON [Concomitant]
  11. RITALIN [Concomitant]
  12. CORTICOSTEROIDS [Concomitant]
  13. SOLU-MEDROL [Concomitant]
  14. ALBUTEROL SULFATE [Concomitant]
  15. STRATTERA [Concomitant]
  16. CONCERTA [Concomitant]
  17. AQUAMEPHYTON [Concomitant]
  18. ERYTHROMYCIN [Concomitant]
  19. DPT [Concomitant]
  20. OPV (POLIOVIRUS VACCINE LIVE ORAL_ [Concomitant]
  21. HIB (HAEMOPHILUS INFLUENZA B) [Concomitant]
  22. M-M-R II [Concomitant]
  23. IPV (POLIOMYELITIS VACCINE INACTIVATED) [Concomitant]
  24. VARICELLA (VARICELLA VIRUS VACCINE, LIVE) [Concomitant]
  25. TUSSIN (TUSSINE SYRUP) [Concomitant]
  26. OXYGEN [Concomitant]
  27. HISTINEX HC [Concomitant]
  28. POLYMYXIN B/TMP [Concomitant]
  29. ................................... [Concomitant]
  30. PREDNISOLONE [Concomitant]
  31. DEXTROSTAT [Concomitant]
  32. M-END [Concomitant]
  33. METHYLPHENIDATE HCL [Concomitant]
  34. AUGMENTIN '125' [Concomitant]
  35. CEFZIL [Concomitant]
  36. ZYRTEC [Concomitant]
  37. XOPENEX [Concomitant]
  38. AMOXIL [Concomitant]
  39. OMNICEF [Concomitant]
  40. DEXEDRIN [Concomitant]
  41. METHADONE HCL [Concomitant]

REACTIONS (26)
  - ADENOIDAL HYPERTROPHY [None]
  - ATTENTION DEFICIT/HYPERACTIVITY DISORDER [None]
  - AUTISM [None]
  - BLOOD CREATININE INCREASED [None]
  - CALCULUS URINARY [None]
  - CROUP INFECTIOUS [None]
  - DIARRHOEA [None]
  - DISEASE RECURRENCE [None]
  - DRUG EXPOSURE DURING PREGNANCY [None]
  - DYSPHAGIA [None]
  - EAR INFECTION [None]
  - GASTROINTESTINAL DISORDER CONGENITAL [None]
  - HAEMATURIA [None]
  - INJURY [None]
  - INTERSTITIAL LUNG DISEASE [None]
  - LARYNGEAL STENOSIS [None]
  - LARYNGOTRACHEO BRONCHITIS [None]
  - LEARNING DISABILITY [None]
  - MECONIUM IN AMNIOTIC FLUID [None]
  - NEURODEVELOPMENTAL DISORDER [None]
  - OTITIS MEDIA [None]
  - PSYCHOMOTOR SKILLS IMPAIRED [None]
  - RESPIRATORY TRACT MALFORMATION [None]
  - ROAD TRAFFIC ACCIDENT [None]
  - URINE ANALYSIS ABNORMAL [None]
  - VIRAL PHARYNGITIS [None]
